FAERS Safety Report 7465325-4 (Version None)
Quarter: 2011Q2

REPORT INFORMATION
  Report Type: 
  Country: None (occurrence: None)
  Receive Date: 20110509
  Receipt Date: 20101018
  Transmission Date: 20111010
  Serious: No
  Sender: FDA-Public Use
  Company Number: US-SANOFI-AVENTIS-2010SA064036

PATIENT
  Age: 67 Year
  Sex: Female

DRUGS (5)
  1. LANTUS [Suspect]
     Indication: TYPE 2 DIABETES MELLITUS
     Dates: start: 20101001
  2. MORPHINE [Concomitant]
     Indication: PAIN
     Route: 065
  3. APIDRA [Suspect]
     Indication: TYPE 2 DIABETES MELLITUS
     Dosage: SLIDING SCALE WITH MEALS
     Route: 058
     Dates: start: 20101001
  4. LANTUS [Suspect]
     Indication: TYPE 2 DIABETES MELLITUS
     Dosage: 50-60 UNITS ONCE A DAY
     Route: 058
     Dates: start: 20070101
  5. ALL OTHER THERAPEUTIC PRODUCTS [Concomitant]
     Indication: PAIN
     Route: 065

REACTIONS (3)
  - PRODUCT QUALITY ISSUE [None]
  - WAIST CIRCUMFERENCE INCREASED [None]
  - BLOOD GLUCOSE INCREASED [None]
